FAERS Safety Report 6201264-4 (Version None)
Quarter: 2009Q2

REPORT INFORMATION
  Report Type: 
  Country: None (occurrence: None)
  Receive Date: 20090526
  Receipt Date: 20090514
  Transmission Date: 20091009
  Serious: Yes (Hospitalization)
  Sender: FDA-Public Use
  Company Number: PHHY2009MX18781

PATIENT
  Sex: Female

DRUGS (1)
  1. DIOVAN HCT [Suspect]
     Indication: HYPERTENSION
     Dosage: (80/12.5 MG) PER DAY
     Route: 048

REACTIONS (3)
  - FALL [None]
  - MUSCULOSKELETAL DISCOMFORT [None]
  - PROSTHESIS IMPLANTATION [None]
